FAERS Safety Report 16526603 (Version 2)
Quarter: 2020Q2

REPORT INFORMATION
  Report Type: Spontaneous
  Country: HR (occurrence: HR)
  Receive Date: 20190703
  Receipt Date: 20200430
  Transmission Date: 20200713
  Serious: Yes (Other)
  Sender: FDA-Public Use
  Company Number: HR-MYLANLABS-2019M1062036

PATIENT
  Age: 74 Year
  Sex: Female
  Weight: 69 kg

DRUGS (4)
  1. KISQALI [Interacting]
     Active Substance: RIBOCICLIB
     Indication: BREAST CANCER FEMALE
     Dosage: 600 MG
     Route: 048
     Dates: start: 20180814
  2. IRUMED [Concomitant]
     Indication: ESSENTIAL HYPERTENSION
     Dosage: 10 MILLIGRAM, QD
     Route: 048
  3. ANASTROZOLE. [Suspect]
     Active Substance: ANASTROZOLE
     Indication: BREAST CANCER FEMALE
     Dosage: 1 MILLIGRAM, QD
     Route: 048
     Dates: start: 20180724
  4. IBUPROFEN. [Concomitant]
     Active Substance: IBUPROFEN
     Dosage: UNK
     Route: 048

REACTIONS (3)
  - Hepatic lesion [Recovered/Resolved]
  - Drug interaction [Unknown]
  - Transaminases increased [Recovering/Resolving]

NARRATIVE: CASE EVENT DATE: 20180911
